FAERS Safety Report 10722381 (Version 2)
Quarter: 2015Q2

REPORT INFORMATION
  Report Type: Report from Study
  Country: US (occurrence: US)
  Receive Date: 20150119
  Receipt Date: 20150420
  Transmission Date: 20150821
  Serious: Yes (Hospitalization)
  Sender: FDA-Public Use
  Company Number: US-GILEAD-2015-0132163

PATIENT
  Age: 56 Year
  Sex: Female

DRUGS (1)
  1. AMBRISENTAN [Suspect]
     Active Substance: AMBRISENTAN
     Indication: PRODUCT USED FOR UNKNOWN INDICATION
     Dosage: 5 MG, QD
     Route: 065
     Dates: start: 20110906

REACTIONS (5)
  - Palpitations [Unknown]
  - Oedema peripheral [Unknown]
  - Hypersensitivity [Unknown]
  - Dyspnoea [Unknown]
  - Dermatitis contact [Unknown]

NARRATIVE: CASE EVENT DATE: 201503
